FAERS Safety Report 18415909 (Version 1)
Quarter: 2020Q4

REPORT INFORMATION
  Report Type: Spontaneous
  Country: US (occurrence: US)
  Receive Date: 20201022
  Receipt Date: 20201022
  Transmission Date: 20210114
  Serious: Yes (Hospitalization)
  Sender: FDA-Public Use
  Company Number: None

PATIENT
  Age: 68 Year
  Sex: Female
  Weight: 48.99 kg

DRUGS (22)
  1. VITAMIN B6 [Concomitant]
     Active Substance: PYRIDOXINE HYDROCHLORIDE
  2. METOPROLOL SUCCINATE ER [Concomitant]
     Active Substance: METOPROLOL SUCCINATE
  3. VITAMIN D3 [Concomitant]
     Active Substance: CHOLECALCIFEROL
  4. GEMCITABINE. [Concomitant]
     Active Substance: GEMCITABINE
  5. DIPHENHYDRAMINE. [Suspect]
     Active Substance: DIPHENHYDRAMINE
     Indication: ANTIALLERGIC THERAPY
     Dosage: ?          OTHER FREQUENCY:DAY 1 + 8 Q 21D;?
     Route: 042
     Dates: start: 20200720, end: 20201022
  6. ONDANSETRON [Concomitant]
     Active Substance: ONDANSETRON
  7. AVASTIN [Concomitant]
     Active Substance: BEVACIZUMAB
  8. AMLODIPINE [Concomitant]
     Active Substance: AMLODIPINE BESYLATE
  9. ZARXIO 300 MCG/0.5 ML SYRN [Concomitant]
  10. RETACRIT [Concomitant]
     Active Substance: EPOETIN ALFA-EPBX
  11. DEXAMETHASONE. [Concomitant]
     Active Substance: DEXAMETHASONE
  12. GEMCITABINE. [Concomitant]
     Active Substance: GEMCITABINE
  13. SIMVASTATIN. [Concomitant]
     Active Substance: SIMVASTATIN
  14. CALCIUM CARBONATE ANTACID [Concomitant]
  15. LEUCOVORIN. [Concomitant]
     Active Substance: LEUCOVORIN
  16. FLUOROURACIL. [Concomitant]
     Active Substance: FLUOROURACIL
  17. MYCOPHENOLATE MOFETIL. [Concomitant]
     Active Substance: MYCOPHENOLATE MOFETIL
  18. OXAPLATIN [Concomitant]
     Active Substance: OXALIPLATIN
  19. FAMOTIDINE. [Suspect]
     Active Substance: FAMOTIDINE
     Indication: GASTROOESOPHAGEAL REFLUX DISEASE
     Dosage: ?          OTHER FREQUENCY:DAY 1 + 8 Q 21D;??
     Route: 042
     Dates: start: 20200720, end: 20201022
  20. EMEND [Concomitant]
     Active Substance: APREPITANT
  21. XARELTO [Concomitant]
     Active Substance: RIVAROXABAN
  22. PACLITAXEL. [Concomitant]
     Active Substance: PACLITAXEL

REACTIONS (3)
  - Feeding disorder [None]
  - Malaise [None]
  - Speech disorder [None]

NARRATIVE: CASE EVENT DATE: 20201022
